FAERS Safety Report 16616192 (Version 3)
Quarter: 2019Q3

REPORT INFORMATION
  Report Type: Spontaneous
  Country: US (occurrence: US)
  Receive Date: 20190723
  Receipt Date: 20190819
  Transmission Date: 20191004
  Serious: Yes (Other)
  Sender: FDA-Public Use
  Company Number: US-BEH-2019104462

PATIENT
  Age: 7 Year
  Sex: Male

DRUGS (8)
  1. IDELVION [Suspect]
     Active Substance: COAGULATION FACTOR IX RECOMBINANT HUMAN
     Dosage: 60-70 INTERNATIONAL UNIT/KILOGRAM, BIW
     Route: 065
  2. IDELVION [Suspect]
     Active Substance: COAGULATION FACTOR IX RECOMBINANT HUMAN
     Dosage: UNK  INTERNATIONAL UNIT/KILOGRAM, QD
     Route: 065
  3. IDELVION [Suspect]
     Active Substance: COAGULATION FACTOR IX RECOMBINANT HUMAN
     Indication: FACTOR IX DEFICIENCY
     Dosage: 50 INTERNATIONAL UNIT/KILOGRAM, QW
     Route: 065
  4. IDELVION [Suspect]
     Active Substance: COAGULATION FACTOR IX RECOMBINANT HUMAN
     Dosage: 60-70 INTERNATIONAL UNIT/KILOGRAM, BIW
     Route: 065
  5. IDELVION [Suspect]
     Active Substance: COAGULATION FACTOR IX RECOMBINANT HUMAN
     Indication: FACTOR IX DEFICIENCY
     Dosage: 50 INTERNATIONAL UNIT/KILOGRAM, QW
     Route: 065
  6. IDELVION [Suspect]
     Active Substance: COAGULATION FACTOR IX RECOMBINANT HUMAN
     Indication: PROPHYLAXIS
     Dosage: 140 INTERNATIONAL UNIT/KILOGRAM, BIW
     Route: 065
  7. IDELVION [Suspect]
     Active Substance: COAGULATION FACTOR IX RECOMBINANT HUMAN
     Dosage: UNK  INTERNATIONAL UNIT/KILOGRAM, QD
     Route: 065
  8. IDELVION [Suspect]
     Active Substance: COAGULATION FACTOR IX RECOMBINANT HUMAN
     Indication: PROPHYLAXIS
     Dosage: 140 INTERNATIONAL UNIT/KILOGRAM, BIW
     Route: 065

REACTIONS (5)
  - Drug ineffective [Unknown]
  - Contusion [Unknown]
  - Arthropathy [Unknown]
  - Arthralgia [Unknown]
  - Joint effusion [Unknown]
